FAERS Safety Report 5854949-3 (Version None)
Quarter: 2008Q3

REPORT INFORMATION
  Report Type: 
  Country: None (occurrence: None)
  Receive Date: 20080822
  Receipt Date: 20080409
  Transmission Date: 20090109
  Serious: No
  Sender: FDA-Public Use
  Company Number: US-ABBOTT-08P-163-0446208-00

PATIENT
  Sex: Male
  Weight: 88.076 kg

DRUGS (5)
  1. SYNTHROID [Suspect]
     Indication: HYPOTHYROIDISM
     Route: 048
     Dates: start: 20080301
  2. CLONIDINE [Concomitant]
     Indication: DRUG USE FOR UNKNOWN INDICATION
  3. RANITIDINE [Concomitant]
     Indication: DRUG USE FOR UNKNOWN INDICATION
  4. SIMVASTATIN [Concomitant]
     Indication: BLOOD CHOLESTEROL INCREASED
  5. TRAVAPOST [Concomitant]
     Indication: GLAUCOMA
     Route: 047

REACTIONS (1)
  - RASH VESICULAR [None]
